FAERS Safety Report 5017089-1 (Version None)
Quarter: 2006Q2

REPORT INFORMATION
  Report Type: 
  Country: None (occurrence: None)
  Receive Date: 20060525
  Receipt Date: 20060515
  Transmission Date: 20061013
  Serious: Yes (Other)
  Sender: FDA-Public Use
  Company Number: 223520

PATIENT
  Age: 46 Year
  Sex: Female

DRUGS (8)
  1. RAPTIVA [Suspect]
     Indication: PSORIASIS
     Dosage: 80 MG, 1/WEEK, SUBCUTANEOUS
     Route: 058
  2. LOTENSIN [Concomitant]
  3. ATENOLOL [Concomitant]
  4. PREMARIN [Concomitant]
  5. LORTAB [Concomitant]
  6. METROLOTION (METRONIDAZOLE) [Concomitant]
  7. METFORMIN [Concomitant]
  8. ZOLOFT [Concomitant]

REACTIONS (1)
  - HEPATIC STEATOSIS [None]
